FAERS Safety Report 19263824 (Version 1)
Quarter: 2021Q2

REPORT INFORMATION
  Report Type: Spontaneous
  Country: CO (occurrence: CO)
  Receive Date: 20210517
  Receipt Date: 20210517
  Transmission Date: 20210717
  Serious: Yes (Other)
  Sender: FDA-Public Use
  Company Number: CO-SA-2021SA160791

PATIENT
  Age: 15 Year
  Sex: Male

DRUGS (2)
  1. ALPROLIX [Suspect]
     Active Substance: EFTRENONACOG ALFA
     Indication: PROPHYLAXIS
     Route: 042
     Dates: start: 20190704
  2. ALPROLIX [Suspect]
     Active Substance: EFTRENONACOG ALFA
     Indication: PROPHYLAXIS
     Route: 042
     Dates: start: 20190704

REACTIONS (8)
  - Haemarthrosis [Unknown]
  - Joint swelling [Unknown]
  - Joint warmth [Unknown]
  - Gait disturbance [Unknown]
  - Arthralgia [Unknown]
  - Joint range of motion decreased [Unknown]
  - Spontaneous haemorrhage [Unknown]
  - Oedema peripheral [Unknown]

NARRATIVE: CASE EVENT DATE: 2021
